FAERS Safety Report 4352003-3 (Version None)
Quarter: 2004Q2

REPORT INFORMATION
  Report Type: 
  Country: None (occurrence: None)
  Receive Date: 20040503
  Receipt Date: 20040426
  Transmission Date: 20050107
  Serious: Yes (Hospitalization)
  Sender: FDA-Public Use
  Company Number: US-AMGEN-US074044

PATIENT
  Age: 5 Year
  Sex: Female

DRUGS (2)
  1. ENBREL [Suspect]
     Indication: JUVENILE ARTHRITIS
     Route: 058
     Dates: start: 20040220, end: 20040419
  2. METHOTREXATE [Concomitant]

REACTIONS (3)
  - BENIGN INTRACRANIAL HYPERTENSION [None]
  - GAIT DISTURBANCE [None]
  - OPTIC NEURITIS [None]
